FAERS Safety Report 4916826-1 (Version None)
Quarter: 2006Q1

REPORT INFORMATION
  Report Type: 
  Country: None (occurrence: None)
  Receive Date: 20060216
  Receipt Date: 20060216
  Transmission Date: 20060701
  Serious: Yes (Other)
  Sender: FDA-Public Use
  Company Number: None

PATIENT
  Age: 75 Year
  Sex: Male
  Weight: 97.5234 kg

DRUGS (7)
  1. EZETIMBE 10 MG [Suspect]
     Indication: HYPERLIPIDAEMIA
     Dosage: 1 TABLET PO DAILY
     Route: 048
     Dates: start: 20051114, end: 20051118
  2. HYDRALAZINE [Concomitant]
  3. METOPROLOL [Concomitant]
  4. ISOSORBIDE MONONITRATE [Concomitant]
  5. POTASSIUM CHLORIDE [Concomitant]
  6. FUROSEMIDE [Concomitant]
  7. PANTOPRAZOLE [Concomitant]

REACTIONS (1)
  - DIZZINESS [None]
